FAERS Safety Report 5021184-0 (Version None)
Quarter: 2006Q2

REPORT INFORMATION
  Report Type: 
  Country: None (occurrence: None)
  Receive Date: 20060608
  Receipt Date: 20060529
  Transmission Date: 20061013
  Serious: Yes (Hospitalization)
  Sender: FDA-Public Use
  Company Number: 2006SE03066

PATIENT
  Age: 41 Year
  Sex: Male

DRUGS (8)
  1. SEROQUEL [Suspect]
     Indication: BIPOLAR DISORDER
     Dosage: 100 MG IN MORNING, 400 MG AT NIGHT
     Route: 048
     Dates: start: 20060405, end: 20060425
  2. PRONAXEN [Suspect]
     Indication: BACK PAIN
     Route: 048
     Dates: start: 20060405, end: 20060425
  3. ANTABUSE [Concomitant]
     Route: 048
  4. INDERAL [Concomitant]
     Route: 048
  5. IKTORIVIL [Concomitant]
     Route: 048
     Dates: end: 20060401
  6. IKTORIVIL [Concomitant]
     Route: 048
     Dates: start: 20060401
  7. IMOVANE [Concomitant]
     Route: 048
  8. ERGENYL [Concomitant]
     Indication: BIPOLAR DISORDER
     Route: 048
     Dates: start: 20060405

REACTIONS (1)
  - OEDEMA PERIPHERAL [None]
